APPROVED DRUG PRODUCT: NYSTATIN
Active Ingredient: NYSTATIN
Strength: 100,000 UNITS/ML
Dosage Form/Route: SUSPENSION;ORAL
Application: A062876 | Product #001
Applicant: TARO PHARMACEUTICAL INDUSTRIES LTD
Approved: Feb 29, 1988 | RLD: No | RS: No | Type: DISCN